FAERS Safety Report 9156154 (Version 1)
Quarter: 2013Q1

REPORT INFORMATION
  Report Type: Spontaneous
  Country: US (occurrence: US)
  Receive Date: 20130311
  Receipt Date: 20130311
  Transmission Date: 20140127
  Serious: Yes (Other)
  Sender: FDA-Public Use
  Company Number: US-BAYER-2013-030200

PATIENT
  Age: 37 Year
  Sex: Male

DRUGS (2)
  1. CAMPHO-PHENIQUE [Suspect]
     Indication: LIP DISORDER
     Dosage: UNK
     Route: 048
  2. CAMPHO-PHENIQUE [Suspect]
     Indication: TONGUE BITING

REACTIONS (9)
  - Hallucination [Not Recovered/Not Resolved]
  - Epistaxis [None]
  - Stomatitis [Not Recovered/Not Resolved]
  - Nasal dryness [Not Recovered/Not Resolved]
  - Dry mouth [Not Recovered/Not Resolved]
  - Oropharyngeal pain [Not Recovered/Not Resolved]
  - Nasal discharge discolouration [Not Recovered/Not Resolved]
  - Abnormal behaviour [Not Recovered/Not Resolved]
  - Incorrect route of drug administration [None]
